FAERS Safety Report 21995142 (Version 1)
Quarter: 2023Q1

REPORT INFORMATION
  Report Type: Spontaneous
  Country: US (occurrence: None)
  Receive Date: 20230215
  Receipt Date: 20230215
  Transmission Date: 20230418
  Serious: Yes (Other)
  Sender: FDA-Public Use
  Company Number: 2023A036598

PATIENT
  Sex: Female
  Weight: 73.9 kg

DRUGS (1)
  1. BUDESONIDE\FORMOTEROL\GLYCOPYRRONIUM [Suspect]
     Active Substance: BUDESONIDE\FORMOTEROL\GLYCOPYRRONIUM
     Indication: Asthma
     Route: 055
     Dates: start: 2022

REACTIONS (11)
  - Pulmonary oedema [Unknown]
  - Wheezing [Unknown]
  - Dyspnoea [Unknown]
  - Pulmonary congestion [Unknown]
  - Condition aggravated [Unknown]
  - Malaise [Unknown]
  - Incorrect dose administered by device [Unknown]
  - Product dose omission issue [Unknown]
  - Device malfunction [Unknown]
  - Device defective [Unknown]
  - Intentional device misuse [Unknown]
